FAERS Safety Report 9778992 (Version 1)
Quarter: 2013Q4

REPORT INFORMATION
  Report Type: Spontaneous
  Country: US (occurrence: US)
  Receive Date: 20131223
  Receipt Date: 20131223
  Transmission Date: 20140711
  Serious: Yes (Hospitalization)
  Sender: FDA-Public Use
  Company Number: US-BAYER-2013-156682

PATIENT
  Age: 30 Year
  Sex: Female
  Weight: 85.71 kg

DRUGS (3)
  1. YASMIN [Suspect]
  2. ACCUTANE [Concomitant]
     Indication: ACNE
  3. LO/OVRAL [Concomitant]

REACTIONS (1)
  - Deep vein thrombosis [Unknown]
